FAERS Safety Report 7379161-0 (Version None)
Quarter: 2011Q1

REPORT INFORMATION
  Report Type: 
  Country: None (occurrence: None)
  Receive Date: 20110328
  Receipt Date: 20110322
  Transmission Date: 20110831
  Serious: Yes (Death, Hospitalization, Other)
  Sender: FDA-Public Use
  Company Number: PHHY2011US22194

PATIENT
  Sex: Male

DRUGS (13)
  1. TENORMIN [Concomitant]
  2. NORVASC [Concomitant]
  3. CELLCEPT [Suspect]
     Indication: IMMUNOSUPPRESSANT DRUG THERAPY
     Dosage: 500 MG, TID
     Dates: start: 20020701, end: 20110201
  4. FOSRENOL [Concomitant]
  5. PROGRAF [Suspect]
     Indication: IMMUNOSUPPRESSANT DRUG THERAPY
     Dosage: 1 MG, BID
     Route: 048
     Dates: start: 20020701, end: 20110201
  6. PREDNISONE [Concomitant]
     Dosage: 60 MG, UNK
     Route: 048
     Dates: start: 20110216
  7. MYFORTIC [Suspect]
     Dosage: UNK
  8. ATENOLOL [Concomitant]
     Indication: BLOOD PRESSURE
     Dosage: 50 MG, BID
     Route: 048
     Dates: end: 20110301
  9. PRILOSEC [Concomitant]
  10. ZOFRAN [Concomitant]
  11. AMLODIPINE [Concomitant]
     Dosage: 5 MG, QD
     Route: 048
     Dates: start: 20100701, end: 20110301
  12. CALCIUM [Concomitant]
     Indication: BONE METABOLISM DISORDER
     Dosage: 600 MG, TID
     Route: 048
     Dates: end: 20110301
  13. DRISDOL [Concomitant]

REACTIONS (12)
  - NAUSEA [None]
  - BLOOD CREATINE INCREASED [None]
  - PYREXIA [None]
  - EPSTEIN-BARR VIRUS ASSOCIATED LYMPHOPROLIFERATIVE DISORDER [None]
  - VOMITING [None]
  - RENAL FAILURE ACUTE [None]
  - DECREASED APPETITE [None]
  - LYMPHOMA [None]
  - ASCITES [None]
  - WHITE BLOOD CELL COUNT INCREASED [None]
  - ABDOMINAL PAIN LOWER [None]
  - DEHYDRATION [None]
